FAERS Safety Report 9228616 (Version 1)
Quarter: 2013Q2

REPORT INFORMATION
  Report Type: Spontaneous
  Country: US (occurrence: US)
  Receive Date: 20130412
  Receipt Date: 20130412
  Transmission Date: 20140414
  Serious: No
  Sender: FDA-Public Use
  Company Number: US-BAYER-2013-041307

PATIENT
  Age: 34 Year
  Sex: Female

DRUGS (1)
  1. MIRENA [Suspect]
     Indication: CONTRACEPTION
     Dosage: 20 MCG/24HR, CONT
     Route: 015
     Dates: start: 20121030, end: 20130325

REACTIONS (7)
  - Anger [None]
  - Depression [None]
  - Feeling abnormal [None]
  - Dyspareunia [None]
  - Personality change [None]
  - Mood swings [None]
  - Medical device discomfort [None]
